FAERS Safety Report 21830148 (Version 1)
Quarter: 2023Q1

REPORT INFORMATION
  Report Type: Spontaneous
  Country: US (occurrence: None)
  Receive Date: 20230105
  Receipt Date: 20230105
  Transmission Date: 20230418
  Serious: Yes (Other)
  Sender: FDA-Public Use
  Company Number: None

PATIENT
  Age: 69 Year
  Sex: Female

DRUGS (1)
  1. LENVIMA [Suspect]
     Active Substance: LENVATINIB
     Indication: Malignant neoplasm of uterine adnexa
     Dosage: FREQUENCY : DAILY;?
     Route: 048
     Dates: start: 20221214

REACTIONS (3)
  - Fatigue [None]
  - Stomatitis [None]
  - Muscle spasms [None]

NARRATIVE: CASE EVENT DATE: 20221229
